FAERS Safety Report 4778184-5 (Version None)
Quarter: 2005Q3

REPORT INFORMATION
  Report Type: 
  Country: None (occurrence: None)
  Receive Date: 20050923
  Receipt Date: 20050923
  Transmission Date: 20060218
  Serious: Yes (Other)
  Sender: FDA-Public Use
  Company Number: None

PATIENT
  Sex: Male
  Weight: 81.1939 kg

DRUGS (11)
  1. VALSARTAN [Suspect]
     Indication: CARDIAC FAILURE
     Dosage: 80MG  BID PO
     Route: 048
     Dates: start: 20050609, end: 20050624
  2. VALSARTAN [Suspect]
     Indication: HYPERTENSION
     Dosage: 80MG  BID PO
     Route: 048
     Dates: start: 20050609, end: 20050624
  3. CARBOXYMETHYLCELLULOSE [Concomitant]
  4. FELODIPINE [Concomitant]
  5. FINASTERIDE [Concomitant]
  6. FLUNISOLIDE [Concomitant]
  7. HYDRALAZINE [Concomitant]
  8. HYDROCHLOROTHIAZIDE [Concomitant]
  9. LOVASTATIN [Concomitant]
  10. METOPROLOL TARTRATE [Concomitant]
  11. TAMSULOSIN [Concomitant]

REACTIONS (2)
  - CHEST DISCOMFORT [None]
  - CHEST PAIN [None]
